FAERS Safety Report 10099132 (Version 1)
Quarter: 2014Q2

REPORT INFORMATION
  Report Type: Spontaneous
  Country: US (occurrence: US)
  Receive Date: 20140423
  Receipt Date: 20140423
  Transmission Date: 20141212
  Serious: No
  Sender: FDA-Public Use
  Company Number: US-GILEAD-2013-0067679

PATIENT
  Sex: Female

DRUGS (2)
  1. LETAIRIS [Suspect]
     Indication: COR PULMONALE CHRONIC
     Dosage: 5 MG, QD
     Route: 048
     Dates: start: 20121218
  2. ADCIRCA [Concomitant]

REACTIONS (5)
  - Syncope [Unknown]
  - Scleroderma [Unknown]
  - Urinary tract infection [Unknown]
  - Dyspnoea [Unknown]
  - Oedema [Unknown]
